FAERS Safety Report 13643818 (Version 1)
Quarter: 2017Q2

REPORT INFORMATION
  Report Type: Report from Study
  Country: US (occurrence: BR)
  Receive Date: 20170612
  Receipt Date: 20170612
  Transmission Date: 20170830
  Serious: Yes (Hospitalization)
  Sender: FDA-Public Use
  Company Number: US-SUNOVION-2017SUN002415

PATIENT
  Sex: Female
  Weight: 60 kg

DRUGS (1)
  1. INDACATEROL AND GLYCOPYRROLATE [Suspect]
     Active Substance: GLYCOPYRROLATE\INDACATEROL MALEATE
     Indication: EMPHYSEMA
     Dosage: 1 DF(110/50 UG), QD
     Route: 055
     Dates: start: 20161220

REACTIONS (14)
  - Catarrh [Recovering/Resolving]
  - Blood pressure decreased [Unknown]
  - Therapeutic response decreased [Unknown]
  - Back pain [Unknown]
  - Hypophagia [Unknown]
  - Vomiting [Recovering/Resolving]
  - Sensitivity to weather change [Unknown]
  - Malaise [Unknown]
  - Lung disorder [Unknown]
  - Urinary incontinence [Unknown]
  - Dyspnoea [Unknown]
  - Pneumonia [Recovering/Resolving]
  - Cough [Recovering/Resolving]
  - Fatigue [Recovered/Resolved]
